FAERS Safety Report 23747835 (Version 3)
Quarter: 2024Q2

REPORT INFORMATION
  Report Type: Spontaneous
  Country: US (occurrence: US)
  Receive Date: 20240416
  Receipt Date: 20240430
  Transmission Date: 20240716
  Serious: Yes (Other)
  Sender: FDA-Public Use
  Company Number: US-SANDOZ-SDZ2024US039645

PATIENT
  Age: 35 Year
  Sex: Male

DRUGS (2)
  1. OMNITROPE [Suspect]
     Active Substance: SOMATROPIN
     Indication: Hypopituitarism
     Dosage: 0.7 MG 2 DOSE EVERY N/A N/A
     Route: 058
     Dates: start: 20220807, end: 20231115
  2. OMNITROPE [Suspect]
     Active Substance: SOMATROPIN
     Dosage: 10 MG/KG, QD
     Route: 058
     Dates: start: 20231107

REACTIONS (3)
  - Fall [Unknown]
  - Skull fracture [Unknown]
  - Malaise [Not Recovered/Not Resolved]

NARRATIVE: CASE EVENT DATE: 20231216
